FAERS Safety Report 9259332 (Version 1)
Quarter: 2013Q2

REPORT INFORMATION
  Report Type: Spontaneous
  Country: CA (occurrence: CA)
  Receive Date: 20130427
  Receipt Date: 20130427
  Transmission Date: 20140414
  Serious: Yes (Life-Threatening, Hospitalization)
  Sender: FDA-Public Use
  Company Number: CA-MYLANLABS-2013S1008784

PATIENT
  Age: 13 Year
  Sex: Female
  Weight: 57 kg

DRUGS (5)
  1. EPINEPHRINE [Suspect]
     Indication: ACCIDENTAL OVERDOSE
     Dosage: 10ML 1:1000 EPINEPHRINE 0.175 MG/KG
     Route: 058
  2. NITROGLYCERIN [Suspect]
     Dosage: 2 MICROG/MIN
     Route: 050
  3. NITROGLYCERIN TRANSDERMAL SYSTEM [Suspect]
     Route: 062
  4. PROPOFOL [Concomitant]
     Indication: ANAESTHESIA PROCEDURE
     Route: 065
  5. FENTANYL [Concomitant]
     Indication: ANAESTHESIA PROCEDURE
     Route: 065

REACTIONS (8)
  - Toxicity to various agents [Recovering/Resolving]
  - Hypertension [Recovered/Resolved]
  - Supraventricular tachycardia [Recovering/Resolving]
  - Pulmonary oedema [Recovered/Resolved]
  - Hypotension [Recovering/Resolving]
  - Cardiac failure [Recovering/Resolving]
  - Accidental overdose [Recovering/Resolving]
  - Wrong drug administered [Recovering/Resolving]
